FAERS Safety Report 8544506 (Version 2)
Quarter: 2013Q3

REPORT INFORMATION
  Report Type: Report from Study
  Country: US (occurrence: US)
  Receive Date: 20120503
  Receipt Date: 20130715
  Transmission Date: 20140515
  Serious: Yes (Hospitalization)
  Sender: FDA-Public Use
  Company Number: US-ROCHE-GNE324674

PATIENT
  Age: 56 Year
  Sex: Female

DRUGS (1)
  1. TRASTUZUMAB EMTANSINE [Suspect]
     Indication: BREAST CANCER
     Dosage: LAST DOSE PRIOR TO SAE: 15 SEP 2011
     Route: 042
     Dates: start: 20110915

REACTIONS (3)
  - Pain [Not Recovered/Not Resolved]
  - Ataxia [Not Recovered/Not Resolved]
  - Confusional state [Recovered/Resolved]
